FAERS Safety Report 13844561 (Version 1)
Quarter: 2017Q3

REPORT INFORMATION
  Report Type: Not Available
  Country: US (occurrence: US)
  Receive Date: 20170808
  Receipt Date: 20170808
  Transmission Date: 20171127
  Serious: Yes (Hospitalization)
  Sender: FDA-Public Use
  Company Number: US-IDTAUSTRALIA-2017-US-008512

PATIENT
  Age: 46 Year
  Sex: Male

DRUGS (1)
  1. FLECAINIDE ACETATE (NON-SPECIFIC) [Suspect]
     Active Substance: FLECAINIDE ACETATE
     Dosage: 50MG EVERY 12 HOURS

REACTIONS (5)
  - Supraventricular tachycardia [Recovered/Resolved]
  - Electrocardiogram QRS complex prolonged [Recovered/Resolved]
  - Toxicity to various agents [Unknown]
  - Acute kidney injury [Recovered/Resolved]
  - Hypotension [Recovered/Resolved]
